FAERS Safety Report 5631839-2 (Version None)
Quarter: 2008Q1

REPORT INFORMATION
  Report Type: 
  Country: None (occurrence: None)
  Receive Date: 20080219
  Receipt Date: 20080219
  Transmission Date: 20080703
  Serious: Yes (Life-Threatening, Hospitalization)
  Sender: FDA-Public Use
  Company Number: None

PATIENT
  Age: 31 Year
  Sex: Male
  Weight: 70 kg

DRUGS (2)
  1. CIPROFLOXACIN [Suspect]
     Indication: URINARY TRACT INFECTION
     Dosage: 400 MG Q 12 HOURS IV
     Route: 042
     Dates: start: 20080205, end: 20080207
  2. PHENYTOIN [Concomitant]

REACTIONS (2)
  - CONVULSION [None]
  - FALL [None]
